FAERS Safety Report 7095874 (Version 2)
Quarter: 2014Q2

REPORT INFORMATION
  Report Type: Spontaneous
  Country: US (occurrence: None)
  Receive Date: 20090817
  Receipt Date: 20140515
  Transmission Date: 20141212
  Serious: Yes (Hospitalization, Other)
  Sender: FDA-Public Use
  Company Number: 2009S1006584

PATIENT
  Sex: Male
  Weight: 72.12 kg

DRUGS (6)
  1. FLEET PHOSPHO-SODA ORAL SALINE LAXATIVE, GINGER-LEMON FLAVOR [Suspect]
     Indication: COLONOSCOPY
     Dosage: ; PO
     Route: 048
     Dates: start: 20081009, end: 20081009
  2. FLEET ENEMA [Suspect]
     Indication: COLONOSCOPY
     Dates: start: 20081010, end: 20081010
  3. LABETALOL [Concomitant]
  4. LISINOPRIL [Concomitant]
  5. VYTORIN [Concomitant]
  6. IMDUR [Concomitant]

REACTIONS (17)
  - Renal failure [None]
  - Arteriovenous malformation [None]
  - Diverticulum [None]
  - Haemorrhoids [None]
  - Iron deficiency anaemia [None]
  - Aneurysm [None]
  - Chest pain [None]
  - Dyspnoea [None]
  - Ejection fraction decreased [None]
  - Respiratory failure [None]
  - Blood glucose increased [None]
  - Blood calcium decreased [None]
  - Blood magnesium increased [None]
  - Arteriosclerosis coronary artery [None]
  - Haemorrhagic anaemia [None]
  - Blood chloride increased [None]
  - Blood calcium decreased [None]
